FAERS Safety Report 4901189-8 (Version None)
Quarter: 2006Q1

REPORT INFORMATION
  Report Type: 
  Country: None (occurrence: None)
  Receive Date: 20060202
  Receipt Date: 20060125
  Transmission Date: 20060701
  Serious: Yes (Other)
  Sender: FDA-Public Use
  Company Number: 200612668

PATIENT
  Age: 57 Year
  Sex: Female
  Weight: 83.9154 kg

DRUGS (7)
  1. LYRICA [Suspect]
     Indication: FIBROMYALGIA
     Dosage: 150 NG (75 MG, 2 IN 1 D), ORAL
     Route: 048
     Dates: start: 20060101, end: 20060125
  2. LYRICA [Suspect]
     Indication: SPINAL OSTEOARTHRITIS
     Dosage: 150 NG (75 MG, 2 IN 1 D), ORAL
     Route: 048
     Dates: start: 20060101, end: 20060125
  3. CYMBALTA [Concomitant]
  4. NORTRIPTYLINE (NORTRIPTYLINE) [Concomitant]
  5. NEXIUM [Concomitant]
  6. DICLOFENAC SODIUM [Concomitant]
  7. AMBIEN [Concomitant]

REACTIONS (11)
  - DEATH OF RELATIVE [None]
  - DIZZINESS [None]
  - EPISTAXIS [None]
  - FEELING ABNORMAL [None]
  - MEMORY IMPAIRMENT [None]
  - OVERDOSE [None]
  - PHARMACEUTICAL PRODUCT COMPLAINT [None]
  - ROAD TRAFFIC ACCIDENT [None]
  - SPEECH DISORDER [None]
  - STUPOR [None]
  - TREATMENT NONCOMPLIANCE [None]
